FAERS Safety Report 6062906-X (Version None)
Quarter: 2009Q1

REPORT INFORMATION
  Report Type: 
  Country: None (occurrence: None)
  Receive Date: 20090203
  Receipt Date: 20090123
  Transmission Date: 20090719
  Serious: Yes (Other)
  Sender: FDA-Public Use
  Company Number: US-AMGEN-KDL329840

PATIENT
  Sex: Male

DRUGS (3)
  1. KINERET [Suspect]
     Indication: AUTOIMMUNE DISORDER
     Dates: start: 20070101
  2. OMEPRAZOLE [Concomitant]
  3. AVAPRO [Concomitant]

REACTIONS (7)
  - ABDOMINAL PAIN UPPER [None]
  - DRUG INEFFECTIVE [None]
  - FATIGUE [None]
  - MALAISE [None]
  - PAIN IN EXTREMITY [None]
  - PYREXIA [None]
  - RASH [None]
